FAERS Safety Report 7053838-9 (Version None)
Quarter: 2010Q4

REPORT INFORMATION
  Report Type: 
  Country: None (occurrence: None)
  Receive Date: 20101020
  Receipt Date: 20101011
  Transmission Date: 20110411
  Serious: Yes (Other)
  Sender: FDA-Public Use
  Company Number: PHHY2010US68085

PATIENT
  Sex: Female

DRUGS (9)
  1. EXTAVIA [Suspect]
     Indication: MULTIPLE SCLEROSIS
     Dosage: 0.250 MG, QOD
     Route: 058
     Dates: start: 20100718
  2. AMBIEN CR [Concomitant]
     Dosage: 12.5 MG, QHS
  3. SEROQUEL XR [Concomitant]
     Dosage: 200 MG, QD
  4. LYRICA [Concomitant]
     Dosage: 100 MG, QD
  5. REQUIP [Concomitant]
     Dosage: 1 MG, QD
  6. LEXAPRO [Concomitant]
     Dosage: 20 MG, QD
  7. TIZANIDINE HCL [Concomitant]
     Dosage: 2 MG, PRN
  8. CALCIUM D SANDOZ [Concomitant]
     Dosage: 500 MG, QD
  9. ADVIL PM /05810501/ [Concomitant]
     Dosage: UNK

REACTIONS (9)
  - ABDOMINAL DISCOMFORT [None]
  - ASTHENIA [None]
  - BLADDER DISCOMFORT [None]
  - FATIGUE [None]
  - GAIT DISTURBANCE [None]
  - HEADACHE [None]
  - INFLUENZA LIKE ILLNESS [None]
  - MULTIPLE SCLEROSIS RELAPSE [None]
  - TEMPOROMANDIBULAR JOINT SYNDROME [None]
